FAERS Safety Report 7955417-5 (Version None)
Quarter: 2011Q4

REPORT INFORMATION
  Report Type: 
  Country: None (occurrence: None)
  Receive Date: 20111202
  Receipt Date: 20111129
  Transmission Date: 20120403
  Serious: Yes (Hospitalization)
  Sender: FDA-Public Use
  Company Number: US-ROCHE-1017688

PATIENT
  Sex: Female
  Weight: 56.75 kg

DRUGS (4)
  1. ACTEMRA [Suspect]
     Indication: RHEUMATOID ARTHRITIS
     Route: 042
     Dates: start: 20111001
  2. PREDNISONE TAB [Concomitant]
  3. NAPROXEN (ALEVE) [Concomitant]
  4. HYDROCODONE [Concomitant]

REACTIONS (6)
  - ABDOMINAL DISCOMFORT [None]
  - JOINT SWELLING [None]
  - BALANCE DISORDER [None]
  - BLOOD GLUCOSE INCREASED [None]
  - GAIT DISTURBANCE [None]
  - BLOOD SODIUM INCREASED [None]
